FAERS Safety Report 15874849 (Version 1)
Quarter: 2019Q1

REPORT INFORMATION
  Report Type: Spontaneous
  Country: US (occurrence: US)
  Receive Date: 20190126
  Receipt Date: 20190126
  Transmission Date: 20190417
  Serious: No
  Sender: FDA-Public Use
  Company Number: US-ACORDA-ACO_153020_2018

PATIENT
  Sex: Female

DRUGS (1)
  1. AMPYRA [Suspect]
     Active Substance: DALFAMPRIDINE
     Indication: MULTIPLE SCLEROSIS
     Dosage: 10 MG, Q 12 HRS
     Route: 048
     Dates: start: 20170617

REACTIONS (6)
  - Fatigue [Unknown]
  - Condition aggravated [Unknown]
  - Constipation [Unknown]
  - Abdominal pain upper [Unknown]
  - Gait disturbance [Unknown]
  - Drug ineffective [Unknown]
